FAERS Safety Report 10392196 (Version 1)
Quarter: 2014Q3

REPORT INFORMATION
  Report Type: Spontaneous
  Country: US (occurrence: US)
  Receive Date: 20140819
  Receipt Date: 20140819
  Transmission Date: 20150326
  Serious: No
  Sender: FDA-Public Use
  Company Number: US-BIOGENIDEC-2014BI080521

PATIENT
  Age: 47 Year
  Sex: Female

DRUGS (9)
  1. LISINOPRIL. [Concomitant]
     Active Substance: LISINOPRIL
  2. BACLOFEN. [Concomitant]
     Active Substance: BACLOFEN
  3. IBUPROFEN. [Concomitant]
     Active Substance: IBUPROFEN
  4. TECFIDERA [Suspect]
     Active Substance: DIMETHYL FUMARATE
     Indication: MULTIPLE SCLEROSIS
     Route: 048
  5. LORAZEPAM. [Concomitant]
     Active Substance: LORAZEPAM
  6. GABAPENTIN. [Concomitant]
     Active Substance: GABAPENTIN
  7. TRAMADOL [Concomitant]
     Active Substance: TRAMADOL
  8. LEVOTHYROXINE [Concomitant]
     Active Substance: LEVOTHYROXINE
  9. LAXIS (NOS) [Concomitant]

REACTIONS (1)
  - Somnolence [Unknown]
